FAERS Safety Report 25815312 (Version 1)
Quarter: 2025Q3

REPORT INFORMATION
  Report Type: Spontaneous
  Country: US (occurrence: US)
  Receive Date: 20250918
  Receipt Date: 20250918
  Transmission Date: 20251021
  Serious: No
  Sender: TOLMAR
  Company Number: US-Tolmar-TLM-2025-06060

PATIENT
  Sex: Male

DRUGS (2)
  1. JATENZO [Suspect]
     Active Substance: TESTOSTERONE UNDECANOATE
     Indication: Blood testosterone decreased
     Dates: start: 20250623
  2. JATENZO [Suspect]
     Active Substance: TESTOSTERONE UNDECANOATE

REACTIONS (1)
  - Inappropriate schedule of product administration [Unknown]
